FAERS Safety Report 4735371-X (Version None)
Quarter: 2005Q3

REPORT INFORMATION
  Report Type: 
  Country: None (occurrence: None)
  Receive Date: 20050802
  Receipt Date: 20050718
  Transmission Date: 20060218
  Serious: Yes (Other)
  Sender: FDA-Public Use
  Company Number: 11883

PATIENT

DRUGS (6)
  1. IRINOTECAN [Suspect]
     Indication: NEOPLASM
  2. FLUOROURACIL [Suspect]
     Indication: NEOPLASM
  3. LEUCOVORIN [Suspect]
     Indication: NEOPLASM
     Dosage: 500 MG/M2 PER_CYCLE IV
     Route: 042
  4. WARFARIN SODIUM [Concomitant]
  5. DEXAMETHASONE [Concomitant]
  6. ONDANSETRON [Concomitant]

REACTIONS (1)
  - ANAEMIA [None]
